FAERS Safety Report 15017160 (Version 3)
Quarter: 2018Q4

REPORT INFORMATION
  Report Type: Spontaneous
  Country: US (occurrence: US)
  Receive Date: 20180615
  Receipt Date: 20181217
  Transmission Date: 20190204
  Serious: Yes (Disabling)
  Sender: FDA-Public Use
  Company Number: US-OTSUKA-2018_015487

PATIENT
  Sex: Male

DRUGS (8)
  1. ABILIFY [Suspect]
     Active Substance: ARIPIPRAZOLE
     Indication: BIPOLAR DISORDER
     Dosage: 15 MG, QD
     Route: 065
  2. ABILIFY [Suspect]
     Active Substance: ARIPIPRAZOLE
     Indication: SCHIZOPHRENIA
     Dosage: 20 MG, QD
     Route: 065
     Dates: end: 201601
  3. ABILIFY [Suspect]
     Active Substance: ARIPIPRAZOLE
     Indication: DEPRESSION
     Dosage: 10 MG, QD
     Route: 065
     Dates: start: 20070113
  4. ABILIFY [Suspect]
     Active Substance: ARIPIPRAZOLE
     Indication: AGITATION
  5. ABILIFY [Suspect]
     Active Substance: ARIPIPRAZOLE
     Indication: HALLUCINATION, AUDITORY
  6. ABILIFY [Suspect]
     Active Substance: ARIPIPRAZOLE
     Indication: ANGER
  7. ABILIFY [Suspect]
     Active Substance: ARIPIPRAZOLE
     Indication: DELUSION
  8. SERTRALINE HYDROCHLORIDE. [Concomitant]
     Active Substance: SERTRALINE HYDROCHLORIDE
     Indication: AFFECTIVE DISORDER
     Dosage: UNK
     Route: 048

REACTIONS (18)
  - Personal relationship issue [Unknown]
  - Fear [Unknown]
  - Social problem [Unknown]
  - Economic problem [Unknown]
  - Anhedonia [Unknown]
  - Eating disorder [Recovered/Resolved]
  - Pain [Unknown]
  - Condition aggravated [Recovered/Resolved]
  - Disability [Unknown]
  - Emotional distress [Unknown]
  - Mental impairment [Unknown]
  - Injury [Unknown]
  - Compulsive shopping [Recovered/Resolved]
  - Compulsive sexual behaviour [Recovered/Resolved]
  - Loss of employment [Unknown]
  - Anxiety [Unknown]
  - Gambling disorder [Recovered/Resolved]
  - Product use in unapproved indication [Unknown]

NARRATIVE: CASE EVENT DATE: 20070113
